FAERS Safety Report 17338510 (Version 4)
Quarter: 2020Q1

REPORT INFORMATION
  Report Type: Spontaneous
  Country: PT (occurrence: PT)
  Receive Date: 20200129
  Receipt Date: 20200227
  Transmission Date: 20200409
  Serious: Yes (Life-Threatening, Hospitalization, Other)
  Sender: FDA-Public Use
  Company Number: NVSC2020PT021750

PATIENT
  Age: 38 Year
  Sex: Male

DRUGS (2)
  1. AMOXICILLIN SODIUM,POTASSIUM CLAVULANATE [Suspect]
     Active Substance: AMOXICILLIN\CLAVULANATE POTASSIUM
     Indication: TONSILLITIS
     Dosage: 2000 MG, QD (875/125 MG TWICE A DAY)
     Route: 065
  2. BENZATHINE BENZYLPENICILLIN [Concomitant]
     Active Substance: PENICILLIN G BENZATHINE
     Indication: TONSILLITIS
     Dosage: UNK
     Route: 065

REACTIONS (9)
  - Neutrophilia [Recovered/Resolved]
  - Acute generalised exanthematous pustulosis [Recovered/Resolved]
  - Erythema [Recovered/Resolved]
  - Drug hypersensitivity [Recovered/Resolved]
  - C-reactive protein increased [Recovered/Resolved]
  - Pustule [Recovered/Resolved]
  - Skin oedema [Recovered/Resolved]
  - Leukocytosis [Recovered/Resolved]
  - Pyrexia [Recovered/Resolved]
